FAERS Safety Report 6970919-6 (Version None)
Quarter: 2010Q3

REPORT INFORMATION
  Report Type: 
  Country: None (occurrence: None)
  Receive Date: 20100908
  Receipt Date: 20100827
  Transmission Date: 20110219
  Serious: Yes (Disabling, Other)
  Sender: FDA-Public Use
  Company Number: JP-PFIZER INC-2010078308

PATIENT
  Age: 75 Year
  Sex: Male
  Weight: 53 kg

DRUGS (16)
  1. CAMPTOSAR [Suspect]
     Indication: NON-SMALL CELL LUNG CANCER
     Dosage: 117.6 MG (80MG/M2), UNK
     Route: 041
     Dates: start: 20100602, end: 20100609
  2. GEMZAR [Suspect]
     Indication: NON-SMALL CELL LUNG CANCER
     Dosage: 1176 MG (800MG/M2), UNK
     Route: 041
     Dates: start: 20100602, end: 20100609
  3. OMEPRAZOLE [Concomitant]
     Indication: GASTRITIS
     Dosage: 20 MG, UNK
     Route: 048
  4. TENORMIN [Concomitant]
     Indication: HYPERTENSION
     Dosage: 25 MG, UNK
     Route: 048
  5. MAGNESIUM OXIDE [Concomitant]
     Indication: CONSTIPATION
     Dosage: 330 MG, 3X/DAY
     Route: 048
  6. AZULENE SULFONATE SODIUM/L-GLUTAMINE [Concomitant]
     Indication: GASTRITIS
     Dosage: 0.5 G, 3X/DAY
     Route: 048
  7. MEDICON [Concomitant]
     Indication: GASTRITIS
     Dosage: 15 MG, 3X/DAY
     Route: 048
  8. MEXITIL [Concomitant]
     Indication: ARRHYTHMIA
     Dosage: 100 MG, 3X/DAY
     Route: 048
  9. LOXONIN [Concomitant]
     Indication: PAIN
     Dosage: 60 MG, 3X/DAY
     Route: 048
  10. OXYCONTIN [Concomitant]
     Indication: CANCER PAIN
     Dosage: 10 MG, 2X/DAY
     Route: 048
     Dates: start: 20100601
  11. PRIMPERAN TAB [Concomitant]
     Indication: NAUSEA
     Dosage: 5 MG, 3X/DAY
     Route: 048
     Dates: start: 20100601
  12. PRIMPERAN TAB [Concomitant]
     Dosage: 10 MG, 3X/DAY
     Route: 041
     Dates: start: 20100606, end: 20100628
  13. OXYCODONE HCL [Concomitant]
     Indication: PAIN
     Dosage: UNK
     Route: 048
     Dates: start: 20100601, end: 20100603
  14. ALLELOCK [Concomitant]
     Indication: DERMATITIS
     Dosage: 5 MG, 2X/DAY
     Route: 048
     Dates: start: 20100609, end: 20100621
  15. SOLU-MEDROL [Concomitant]
     Indication: PROPHYLAXIS
     Dosage: 125 MG, UNK
     Route: 041
     Dates: start: 20100612, end: 20100618
  16. MEROPENEM TRIHYDRATE [Concomitant]
     Indication: PYREXIA
     Dosage: 0.5 G, 3X/DAY
     Route: 041
     Dates: start: 20100618, end: 20100622

REACTIONS (5)
  - ENTEROCOLITIS HAEMORRHAGIC [None]
  - HAEMOGLOBIN DECREASED [None]
  - LEUKOPENIA [None]
  - NEUTROPENIA [None]
  - THROMBOCYTOPENIA [None]
